FAERS Safety Report 15940159 (Version 1)
Quarter: 2019Q1

REPORT INFORMATION
  Report Type: Spontaneous
  Country: RU (occurrence: RU)
  Receive Date: 20190208
  Receipt Date: 20190208
  Transmission Date: 20190417
  Serious: Yes (Hospitalization)
  Sender: FDA-Public Use
  Company Number: RU-JNJFOC-20190140652

PATIENT
  Age: 65 Year
  Sex: Female

DRUGS (6)
  1. GALANTAMINE HBR [Suspect]
     Active Substance: GALANTAMINE HYDROBROMIDE
     Indication: POSTERIOR CORTICAL ATROPHY
     Route: 065
     Dates: start: 2013, end: 2017
  2. GALANTAMINE HBR [Suspect]
     Active Substance: GALANTAMINE HYDROBROMIDE
     Indication: BALINT^S SYNDROME
     Route: 065
     Dates: start: 2013, end: 2017
  3. MEMANTIN [Suspect]
     Active Substance: MEMANTINE
     Indication: CEREBRAL ATROPHY
     Route: 065
     Dates: start: 2013
  4. MEMANTIN [Suspect]
     Active Substance: MEMANTINE
     Indication: BALINT^S SYNDROME
     Route: 065
     Dates: start: 2013
  5. MEMANTIN [Suspect]
     Active Substance: MEMANTINE
     Indication: POSTERIOR CORTICAL ATROPHY
     Route: 065
     Dates: start: 2013
  6. GALANTAMINE HBR [Suspect]
     Active Substance: GALANTAMINE HYDROBROMIDE
     Indication: CEREBRAL ATROPHY
     Route: 065
     Dates: start: 2013, end: 2017

REACTIONS (3)
  - Psychomotor hyperactivity [Unknown]
  - Product use in unapproved indication [Unknown]
  - Off label use [Unknown]

NARRATIVE: CASE EVENT DATE: 2017
